FAERS Safety Report 19364010 (Version 3)
Quarter: 2021Q2

REPORT INFORMATION
  Report Type: Report from Study
  Country: US (occurrence: US)
  Receive Date: 20210603
  Receipt Date: 20210630
  Transmission Date: 20210717
  Serious: No
  Sender: FDA-Public Use
  Company Number: NVSC2021US118508

PATIENT
  Age: 38 Year
  Sex: Female
  Weight: 67 kg

DRUGS (2)
  1. ILARIS [Suspect]
     Active Substance: CANAKINUMAB
     Indication: STILL^S DISEASE
     Dosage: 270 MG, Q4W
     Route: 058
     Dates: start: 20210327
  2. ILARIS [Suspect]
     Active Substance: CANAKINUMAB
     Indication: STILL^S DISEASE

REACTIONS (14)
  - Decreased appetite [Unknown]
  - Feeling hot [Unknown]
  - Feeling cold [Unknown]
  - Arthralgia [Unknown]
  - Incontinence [Unknown]
  - Drug ineffective [Unknown]
  - Pain [Unknown]
  - Night sweats [Unknown]
  - Asthenia [Unknown]
  - Hot flush [Recovered/Resolved]
  - Hyperhidrosis [Unknown]
  - Pain in extremity [Unknown]
  - Abdominal pain [Unknown]
  - Diarrhoea [Unknown]

NARRATIVE: CASE EVENT DATE: 20210512
